FAERS Safety Report 5448462-5 (Version None)
Quarter: 2007Q3

REPORT INFORMATION
  Report Type: 
  Country: None (occurrence: None)
  Receive Date: 20070906
  Receipt Date: 20070830
  Transmission Date: 20080115
  Serious: Yes (Hospitalization, Other)
  Sender: FDA-Public Use
  Company Number: 2007BI017735

PATIENT
  Age: 58 Year
  Sex: Female

DRUGS (1)
  1. AVONEX [Suspect]
     Indication: MULTIPLE SCLEROSIS
     Dosage: 30 UG, QW;IM
     Route: 042
     Dates: start: 20060511

REACTIONS (12)
  - DECUBITUS ULCER [None]
  - DEVICE OCCLUSION [None]
  - EMBOLISM [None]
  - FUNGAL INFECTION [None]
  - HAEMORRHAGE [None]
  - INFECTION [None]
  - JOINT ABSCESS [None]
  - LUNG NEOPLASM [None]
  - OPEN WOUND [None]
  - OSTEOMYELITIS [None]
  - PULMONARY THROMBOSIS [None]
  - THROMBOSIS [None]
